FAERS Safety Report 9701216 (Version 2)
Quarter: 2013Q4

REPORT INFORMATION
  Report Type: Spontaneous
  Country: US (occurrence: US)
  Receive Date: 20131121
  Receipt Date: 20131121
  Transmission Date: 20140711
  Serious: No
  Sender: FDA-Public Use
  Company Number: US-GILEAD-2008-0015835

PATIENT
  Age: 78 Year
  Sex: Male

DRUGS (7)
  1. LETAIRIS [Suspect]
     Route: 048
     Dates: start: 20080208, end: 20080301
  2. COUMADIN [Concomitant]
     Route: 048
  3. DIGOXIN [Concomitant]
     Route: 048
  4. METOPROLOL [Concomitant]
     Route: 048
  5. LIPITOR [Concomitant]
     Route: 048
  6. PREDNISONE [Concomitant]
     Route: 048
  7. AZATHIOPRINE [Concomitant]
     Route: 048

REACTIONS (3)
  - Oedema peripheral [Recovered/Resolved]
  - Constipation [Recovered/Resolved]
  - Diarrhoea [Recovered/Resolved]
